FAERS Safety Report 10343531 (Version 2)
Quarter: 2014Q3

REPORT INFORMATION
  Report Type: Spontaneous
  Country: IN (occurrence: None)
  Receive Date: 20140723
  Receipt Date: 20140806
  Transmission Date: 20150326
  Serious: Yes (Other)
  Sender: FDA-Public Use
  Company Number: AUR-APL-2014-07804

PATIENT
  Age: 56 Year
  Sex: Male
  Weight: 70 kg

DRUGS (4)
  1. MIRTAZAPINE. [Suspect]
     Active Substance: MIRTAZAPINE
     Indication: PRODUCT USED FOR UNKNOWN INDICATION
  2. NEBIVOLOL [Concomitant]
     Active Substance: NEBIVOLOL
  3. PINAVERIUM BROMIDE [Suspect]
     Active Substance: PINAVERIUM BROMIDE
     Indication: IRRITABLE BOWEL SYNDROME
  4. PANTOPRAZOLE [Concomitant]
     Active Substance: PANTOPRAZOLE SODIUM

REACTIONS (6)
  - Vomiting [None]
  - Hepatomegaly [None]
  - Abdominal pain [None]
  - Nausea [None]
  - Decreased appetite [None]
  - Hepatitis acute [None]
